FAERS Safety Report 7214807-9 (Version None)
Quarter: 2011Q1

REPORT INFORMATION
  Report Type: 
  Country: None (occurrence: None)
  Receive Date: 20110107
  Receipt Date: 20100308
  Transmission Date: 20110831
  Serious: Yes (Other)
  Sender: FDA-Public Use
  Company Number: A0848885A

PATIENT

DRUGS (2)
  1. LOVAZA [Suspect]
     Route: 048
  2. ANTICOAGULANT [Suspect]

REACTIONS (1)
  - BLEEDING TIME PROLONGED [None]
